FAERS Safety Report 25462069 (Version 1)
Quarter: 2025Q2

REPORT INFORMATION
  Report Type: Spontaneous
  Country: US (occurrence: US)
  Receive Date: 20250620
  Receipt Date: 20250620
  Transmission Date: 20250717
  Serious: No
  Sender: AMARIN
  Company Number: US-Amarin Pharma  Inc-2025AMR000213

PATIENT
  Age: 72 Year
  Sex: Male

DRUGS (2)
  1. VASCEPA [Suspect]
     Active Substance: ICOSAPENT ETHYL
     Indication: Cardiac disorder
     Dates: start: 2018, end: 20250324
  2. VASCEPA [Suspect]
     Active Substance: ICOSAPENT ETHYL
     Dosage: RESTARTED
     Dates: start: 202503

REACTIONS (4)
  - Product dose omission issue [Unknown]
  - Poor quality product administered [Unknown]
  - Product after taste [Unknown]
  - Product odour abnormal [Unknown]

NARRATIVE: CASE EVENT DATE: 20250323
